FAERS Safety Report 9192455 (Version 1)
Quarter: 2013Q1

REPORT INFORMATION
  Report Type: Spontaneous
  Country: US (occurrence: None)
  Receive Date: 20120703
  Receipt Date: 20120703
  Transmission Date: 20140127
  Serious: Yes (Hospitalization)
  Sender: FDA-Public Use
  Company Number: PHEH2012US009389

PATIENT
  Age: 36 Year
  Sex: Female
  Weight: 68 kg

DRUGS (5)
  1. GILENYA [Suspect]
     Indication: MULTIPLE SCLEROSIS
     Route: 048
     Dates: start: 20120501, end: 20120502
  2. ZOLOFT (SERTRALINE HYDROCHLORIDE) [Concomitant]
  3. VESICARE (SOLIFENACIN) [Concomitant]
  4. CYTOMEL (LIORTHYRONINE SODIUM) [Concomitant]
  5. SYNTHROID (LEVOTHYROXINE SODIUM) [Concomitant]

REACTIONS (3)
  - Sinus bradycardia [None]
  - Electrocardiogram abnormal [None]
  - Fatigue [None]
